FAERS Safety Report 5760783-5 (Version None)
Quarter: 2008Q2

REPORT INFORMATION
  Report Type: 
  Country: None (occurrence: None)
  Receive Date: 20080606
  Receipt Date: 20080528
  Transmission Date: 20081010
  Serious: Yes (Disabling, Other)
  Sender: FDA-Public Use
  Company Number: US-ROCHE-385761

PATIENT
  Sex: Male
  Weight: 78 kg

DRUGS (6)
  1. ACCUTANE [Suspect]
     Route: 048
     Dates: start: 20000816, end: 20010906
  2. ACCUTANE [Suspect]
     Route: 048
     Dates: start: 20010906
  3. ACCUTANE [Suspect]
     Route: 048
     Dates: end: 20011101
  4. KEFLEX [Concomitant]
     Dates: start: 20010111
  5. TAC 3 [Concomitant]
     Dates: start: 20010208
  6. MONODOX [Concomitant]
     Dosage: PATIENT GIVEN TWO MONTHS THERAPY.
     Dates: start: 19961201, end: 19970201

REACTIONS (28)
  - ANAL FISSURE [None]
  - ARTHRALGIA [None]
  - BACK PAIN [None]
  - BARRETT'S OESOPHAGUS [None]
  - BODY TEMPERATURE INCREASED [None]
  - COLITIS [None]
  - COLITIS ULCERATIVE [None]
  - COLON INJURY [None]
  - CONSTIPATION [None]
  - CROHN'S DISEASE [None]
  - DRY SKIN [None]
  - FATIGUE [None]
  - GASTRIC HAEMORRHAGE [None]
  - GASTROINTESTINAL DISORDER [None]
  - GASTROOESOPHAGEAL REFLUX DISEASE [None]
  - HEADACHE [None]
  - INFLAMMATORY BOWEL DISEASE [None]
  - INTESTINAL HAEMORRHAGE [None]
  - IRRITABLE BOWEL SYNDROME [None]
  - LIGAMENT RUPTURE [None]
  - MENISCUS LESION [None]
  - MYALGIA [None]
  - OEDEMA PERIPHERAL [None]
  - PALPITATIONS [None]
  - PROCTITIS ULCERATIVE [None]
  - RECTAL HAEMORRHAGE [None]
  - TESTICULAR PAIN [None]
  - VISUAL DISTURBANCE [None]
